FAERS Safety Report 19838493 (Version 1)
Quarter: 2021Q3

REPORT INFORMATION
  Report Type: Spontaneous
  Country: US (occurrence: US)
  Receive Date: 20210915
  Receipt Date: 20210915
  Transmission Date: 20211014
  Serious: Yes (Hospitalization)
  Sender: FDA-Public Use
  Company Number: None

PATIENT
  Age: 69 Year
  Sex: Female
  Weight: 78.1 kg

DRUGS (6)
  1. REMDESIVIR. [Suspect]
     Active Substance: REMDESIVIR
     Indication: COVID-19
     Dosage: ?          OTHER FREQUENCY:ONCE;?
     Route: 042
     Dates: start: 20210908, end: 20210909
  2. GUAIFENESIN. [Concomitant]
     Active Substance: GUAIFENESIN
  3. DEXAMETHASONE. [Concomitant]
     Active Substance: DEXAMETHASONE
  4. LEVOTHYROXINE. [Concomitant]
     Active Substance: LEVOTHYROXINE
  5. ATORVASTATIN [Concomitant]
     Active Substance: ATORVASTATIN
  6. BENZONATATE. [Concomitant]
     Active Substance: BENZONATATE

REACTIONS (4)
  - Dyspnoea [None]
  - Heart rate decreased [None]
  - Sinus bradycardia [None]
  - Oxygen saturation decreased [None]

NARRATIVE: CASE EVENT DATE: 20210908
